FAERS Safety Report 19000137 (Version 3)
Quarter: 2021Q2

REPORT INFORMATION
  Report Type: Spontaneous
  Country: IT (occurrence: IT)
  Receive Date: 20210312
  Receipt Date: 20210406
  Transmission Date: 20210717
  Serious: Yes (Hospitalization)
  Sender: FDA-Public Use
  Company Number: IT-ROCHE-2784791

PATIENT
  Age: 49 Year
  Sex: Male

DRUGS (2)
  1. OCREVUS [Suspect]
     Active Substance: OCRELIZUMAB
     Indication: MULTIPLE SCLEROSIS
     Route: 042
     Dates: start: 20200207
  2. OCREVUS [Suspect]
     Active Substance: OCRELIZUMAB
     Dosage: ON 06/AUG/2020 AND 12/FEB/2021, HE RECEIVED SUBSEQUENT DOSE OF OCRELIZUMAB.
     Route: 042
     Dates: start: 20200221

REACTIONS (1)
  - COVID-19 pneumonia [Recovered/Resolved]

NARRATIVE: CASE EVENT DATE: 20201029
